FAERS Safety Report 24784229 (Version 1)
Quarter: 2024Q4

REPORT INFORMATION
  Report Type: Spontaneous
  Country: RU (occurrence: RU)
  Receive Date: 20241227
  Receipt Date: 20241227
  Transmission Date: 20250115
  Serious: Yes (Life-Threatening, Other)
  Sender: PFIZER
  Company Number: RU-PFIZER INC-PV202400167160

PATIENT
  Age: 43 Year
  Sex: Female

DRUGS (2)
  1. VORICONAZOLE [Suspect]
     Active Substance: VORICONAZOLE
     Indication: Aspergillus infection
     Dosage: 6 MG/KG, 2X/DAY; LOADING DOSE
     Route: 042
     Dates: start: 20170823
  2. VORICONAZOLE [Suspect]
     Active Substance: VORICONAZOLE
     Dosage: 4 MG/KG, 2X/DAY; LOADING DOSE
     Route: 042
     Dates: end: 20170905

REACTIONS (2)
  - Drug ineffective [Unknown]
  - Drug resistance [Unknown]
